FAERS Safety Report 6126278-4 (Version None)
Quarter: 2009Q1

REPORT INFORMATION
  Report Type: 
  Country: None (occurrence: None)
  Receive Date: 20090320
  Receipt Date: 20090309
  Transmission Date: 20090719
  Serious: Yes (Other)
  Sender: FDA-Public Use
  Company Number: FR-ROCHE-620696

PATIENT
  Age: 15 Month
  Sex: Female

DRUGS (2)
  1. ISOTRETINOIN [Suspect]
     Indication: NEUROBLASTOMA
     Dosage: DRUG INTERRUPTED FOR TWO MONTHS
     Route: 065
  2. ISOTRETINOIN [Suspect]
     Dosage: DOSE REDUCED
     Route: 065

REACTIONS (1)
  - HYPERCALCAEMIA [None]
